FAERS Safety Report 7132264-8 (Version None)
Quarter: 2010Q4

REPORT INFORMATION
  Report Type: 
  Country: None (occurrence: None)
  Receive Date: 20101202
  Receipt Date: 20101119
  Transmission Date: 20110411
  Serious: Yes (Hospitalization)
  Sender: FDA-Public Use
  Company Number: PHHY2010CA78193

PATIENT
  Sex: Male

DRUGS (2)
  1. CLOZARIL [Suspect]
     Dosage: UNK
     Dates: start: 20100923
  2. CLOZARIL [Suspect]
     Dosage: UNK
     Dates: start: 20101114

REACTIONS (6)
  - BRAIN INJURY [None]
  - COMA [None]
  - CONVULSION [None]
  - PNEUMONIA [None]
  - SKULL FRACTURE [None]
  - SYNCOPE [None]
